FAERS Safety Report 17130297 (Version 1)
Quarter: 2019Q4

REPORT INFORMATION
  Report Type: Spontaneous
  Country: US (occurrence: US)
  Receive Date: 20191209
  Receipt Date: 20191209
  Transmission Date: 20200122
  Serious: No
  Sender: FDA-Public Use
  Company Number: US-SA-2019SA336699

PATIENT
  Age: 32 Year
  Sex: Male

DRUGS (1)
  1. ADMELOG [Suspect]
     Active Substance: INSULIN LISPRO
     Dosage: 3 UNITS AT BREAKFAST, 6 UNITS AT LUNCH, 4 UNITS AT DINNER
     Route: 065

REACTIONS (2)
  - Product storage error [Unknown]
  - Wrong technique in device usage process [Unknown]
